FAERS Safety Report 4338879-4 (Version None)
Quarter: 2004Q2

REPORT INFORMATION
  Report Type: 
  Country: None (occurrence: None)
  Receive Date: 20040409
  Receipt Date: 20040319
  Transmission Date: 20050107
  Serious: Yes (Hospitalization, Other)
  Sender: FDA-Public Use
  Company Number: 200310164BCA

PATIENT
  Age: 70 Year
  Sex: Female
  Weight: 61.4 kg

DRUGS (15)
  1. MOXIFLOXACIN HCL [Suspect]
     Indication: ABDOMINAL INFECTION
     Dosage: 400 MG, TOTAL DAILY, INTRAVENOUS
     Route: 042
     Dates: start: 20030214, end: 20030219
  2. RANITIDINE [Concomitant]
  3. POTASSIUM CHLORIDE [Concomitant]
  4. HEPARIN [Concomitant]
  5. ALTACE [Concomitant]
  6. NARCAN [Concomitant]
  7. DILAUDID [Concomitant]
  8. DOBUTAMINE [Concomitant]
  9. CALCIUM CHLORIDE [Concomitant]
  10. GRAVOL TAB [Concomitant]
  11. RINGER-LAKTAT [Concomitant]
  12. FENTANYL [Concomitant]
  13. DEMEROL [Concomitant]
  14. TALWIN [Concomitant]
  15. DULCOLAX [Concomitant]

REACTIONS (3)
  - CEREBROVASCULAR ACCIDENT [None]
  - ENDOSCOPY ABNORMAL [None]
  - GASTROINTESTINAL HAEMORRHAGE [None]
